FAERS Safety Report 5583117-8 (Version None)
Quarter: 2008Q1

REPORT INFORMATION
  Report Type: 
  Country: None (occurrence: None)
  Receive Date: 20080107
  Receipt Date: 20070312
  Transmission Date: 20080703
  Serious: No
  Sender: FDA-Public Use
  Company Number: A0642866A

PATIENT
  Age: 69 Year
  Sex: Male

DRUGS (2)
  1. CIMETIDINE [Suspect]
     Dosage: 300MG FOUR TIMES PER DAY
     Route: 048
     Dates: start: 20060101, end: 20060101
  2. DONNATAL [Concomitant]

REACTIONS (2)
  - DRUG INEFFECTIVE [None]
  - STOMACH DISCOMFORT [None]
